FAERS Safety Report 9789109 (Version 2)
Quarter: 2014Q1

REPORT INFORMATION
  Report Type: Spontaneous
  Country: US (occurrence: US)
  Receive Date: 20131230
  Receipt Date: 20140210
  Transmission Date: 20141002
  Serious: No
  Sender: FDA-Public Use
  Company Number: US-009507513-1312USA009783

PATIENT
  Age: 66 Year
  Sex: Male
  Weight: 113.38 kg

DRUGS (3)
  1. CLARITIN [Suspect]
     Indication: HYPERSENSITIVITY
     Dosage: 10 MG, QD
     Route: 048
     Dates: start: 201208
  2. CLARITIN [Suspect]
     Indication: URTICARIA
  3. OCUVITE PRESERVISION [Concomitant]
     Indication: MACULAR DEGENERATION
     Dosage: UNK, UNKNOWN

REACTIONS (2)
  - Drug ineffective for unapproved indication [Unknown]
  - Off label use [Unknown]
